FAERS Safety Report 4575620-4 (Version None)
Quarter: 2005Q1

REPORT INFORMATION
  Report Type: 
  Country: None (occurrence: None)
  Receive Date: 20050209
  Receipt Date: 20050118
  Transmission Date: 20050727
  Serious: Yes (Other)
  Sender: FDA-Public Use
  Company Number: NL-GLAXOSMITHKLINE-B0365234A

PATIENT
  Age: 12 Year
  Sex: Male

DRUGS (3)
  1. FLUTICASONE PROPIONATE [Suspect]
     Indication: HYPERSENSITIVITY
     Route: 065
     Dates: start: 20020601
  2. FLUTICASONE PROPIONATE [Suspect]
     Indication: ASTHMA
     Dosage: 1U TWICE PER DAY
     Dates: start: 19980101
  3. ARIMIDEX [Concomitant]
     Indication: PRECOCIOUS PUBERTY
     Dosage: 1MG PER DAY
     Route: 065
     Dates: start: 20030804

REACTIONS (1)
  - PAPILLOEDEMA [None]
